FAERS Safety Report 7549099-4 (Version None)
Quarter: 2011Q2

REPORT INFORMATION
  Report Type: 
  Country: None (occurrence: None)
  Receive Date: 20110615
  Receipt Date: 20110601
  Transmission Date: 20111010
  Serious: Yes (Death, Hospitalization)
  Sender: FDA-Public Use
  Company Number: FR-CELGENEUS-056-C5013-11060476

PATIENT
  Sex: Male
  Weight: 63 kg

DRUGS (3)
  1. LENALIDOMIDE [Suspect]
     Dosage: 15 MILLIGRAM
     Route: 048
     Dates: start: 20110519
  2. REPAGLINIDE [Concomitant]
     Route: 065
     Dates: start: 20080401
  3. LENALIDOMIDE [Suspect]
     Indication: MANTLE CELL LYMPHOMA
     Dosage: 10 MILLIGRAM
     Route: 048
     Dates: start: 20100209

REACTIONS (2)
  - LUNG DISORDER [None]
  - SUDDEN DEATH [None]
